FAERS Safety Report 25603178 (Version 1)
Quarter: 2025Q3

REPORT INFORMATION
  Report Type: Report from Study
  Country: US (occurrence: None)
  Receive Date: 20250724
  Receipt Date: 20250724
  Transmission Date: 20251020
  Serious: No
  Sender: INCYTE
  Company Number: US-INCYTE CORPORATION-2025IN007893

PATIENT

DRUGS (2)
  1. JAKAFI [Suspect]
     Active Substance: RUXOLITINIB
     Indication: Acute myeloid leukaemia
     Dosage: 5 MILLIGRAM, BID
  2. JAKAFI [Suspect]
     Active Substance: RUXOLITINIB
     Indication: Graft versus host disease
     Route: 065

REACTIONS (3)
  - Platelet count increased [Unknown]
  - Intentional product use issue [Unknown]
  - Pleurisy [Unknown]
